FAERS Safety Report 25698913 (Version 1)
Quarter: 2025Q3

REPORT INFORMATION
  Report Type: Spontaneous
  Country: EU (occurrence: EU)
  Receive Date: 20250819
  Receipt Date: 20250819
  Transmission Date: 20251021
  Serious: Yes (Hospitalization)
  Sender: CHEPLAPHARM
  Company Number: None

PATIENT
  Age: 60 Year
  Sex: Female
  Weight: 35 kg

DRUGS (19)
  1. OLANZAPINE [Suspect]
     Active Substance: OLANZAPINE
     Indication: Appetite disorder
     Dosage: DAILY DOSE: 5 MILLIGRAM
     Route: 048
     Dates: start: 20250612, end: 20250708
  2. RIBOCICLIB [Suspect]
     Active Substance: RIBOCICLIB
     Indication: Electrocardiogram QT prolonged
     Dosage: DAILY DOSE: 600 MILLIGRAM
     Route: 048
     Dates: start: 20250324, end: 20250501
  3. RIBOCICLIB [Suspect]
     Active Substance: RIBOCICLIB
     Indication: Dyspnoea
     Dosage: DAILY DOSE: 600 MILLIGRAM
     Route: 048
     Dates: start: 20250324, end: 20250501
  4. RIBOCICLIB [Suspect]
     Active Substance: RIBOCICLIB
     Indication: Diarrhoea
     Dosage: DAILY DOSE: 600 MILLIGRAM
     Route: 048
     Dates: start: 20250324, end: 20250501
  5. RIBOCICLIB [Suspect]
     Active Substance: RIBOCICLIB
     Indication: Breast cancer metastatic
     Dosage: DAILY DOSE: 600 MILLIGRAM
     Route: 048
     Dates: start: 20250324, end: 20250501
  6. RIBOCICLIB [Suspect]
     Active Substance: RIBOCICLIB
     Indication: Electrocardiogram QT prolonged
     Dosage: REDUCED FOR A SECOND COURSE OF TREATMENT?DAILY DOSE: 400 MILLIGRAM
     Route: 048
     Dates: start: 20250501
  7. RIBOCICLIB [Suspect]
     Active Substance: RIBOCICLIB
     Indication: Dyspnoea
     Dosage: REDUCED FOR A SECOND COURSE OF TREATMENT?DAILY DOSE: 400 MILLIGRAM
     Route: 048
     Dates: start: 20250501
  8. RIBOCICLIB [Suspect]
     Active Substance: RIBOCICLIB
     Indication: Diarrhoea
     Dosage: REDUCED FOR A SECOND COURSE OF TREATMENT?DAILY DOSE: 400 MILLIGRAM
     Route: 048
     Dates: start: 20250501
  9. RIBOCICLIB [Suspect]
     Active Substance: RIBOCICLIB
     Indication: Breast cancer metastatic
     Dosage: REDUCED FOR A SECOND COURSE OF TREATMENT?DAILY DOSE: 400 MILLIGRAM
     Route: 048
     Dates: start: 20250501
  10. RIBOCICLIB [Suspect]
     Active Substance: RIBOCICLIB
     Indication: Electrocardiogram QT prolonged
     Route: 048
     Dates: start: 20250630, end: 20250708
  11. RIBOCICLIB [Suspect]
     Active Substance: RIBOCICLIB
     Indication: Dyspnoea
     Route: 048
     Dates: start: 20250630, end: 20250708
  12. RIBOCICLIB [Suspect]
     Active Substance: RIBOCICLIB
     Indication: Diarrhoea
     Route: 048
     Dates: start: 20250630, end: 20250708
  13. RIBOCICLIB [Suspect]
     Active Substance: RIBOCICLIB
     Indication: Breast cancer metastatic
     Route: 048
     Dates: start: 20250630, end: 20250708
  14. LETROZOLE [Concomitant]
     Active Substance: LETROZOLE
     Indication: Hormone receptor positive breast cancer
     Dosage: IN THE MORNING?DAILY DOSE: 2.5 MILLIGRAM
     Route: 048
     Dates: start: 20250305
  15. LETROZOLE [Concomitant]
     Active Substance: LETROZOLE
     Indication: Hormone receptor positive breast cancer
     Dosage: WITH RIBOCICLIB ?DAILY DOSE: 2.5 MILLIGRAM
     Route: 048
     Dates: start: 20250324
  16. XGEVA [Concomitant]
     Active Substance: DENOSUMAB
     Indication: Metastases to bone
     Route: 058
  17. PROPRANOLOL [Concomitant]
     Active Substance: PROPRANOLOL HYDROCHLORIDE
     Indication: Hypertension
     Route: 048
  18. PERINDOPRIL [Concomitant]
     Active Substance: PERINDOPRIL
     Indication: Hypertension
     Dosage: DAILY DOSE: 2 MILLIGRAM
     Route: 048
  19. ACETAMINOPHEN\OPIUM [Concomitant]
     Active Substance: ACETAMINOPHEN\OPIUM
     Indication: Pain
     Route: 048
     Dates: start: 20250324

REACTIONS (3)
  - Cardiac failure [Recovering/Resolving]
  - Acute coronary syndrome [Unknown]
  - Off label use [Recovered/Resolved]

NARRATIVE: CASE EVENT DATE: 20250612
